FAERS Safety Report 10573287 (Version 2)
Quarter: 2015Q1

REPORT INFORMATION
  Report Type: Spontaneous
  Country: IT (occurrence: IT)
  Receive Date: 20141110
  Receipt Date: 20150210
  Transmission Date: 20150720
  Serious: Yes (Hospitalization, Other)
  Sender: FDA-Public Use
  Company Number: IT-NOVOPROD-427387

PATIENT
  Age: 69 Year
  Sex: Male

DRUGS (4)
  1. RYTMOBETA [Concomitant]
     Active Substance: SOTALOL HYDROCHLORIDE
     Dosage: 2 U
     Route: 048
  2. CARDIOASPIRIN [Concomitant]
     Active Substance: ASPIRIN
     Dosage: 1 U
     Route: 048
     Dates: start: 20111005
  3. TACHIDOL [Concomitant]
     Active Substance: ACETAMINOPHEN\CODEINE PHOSPHATE
     Indication: SUICIDE ATTEMPT
     Dosage: 5 U
     Route: 048
     Dates: start: 20141005, end: 20141005
  4. NOVORAPID [Suspect]
     Active Substance: INSULIN ASPART
     Indication: SUICIDE ATTEMPT
     Dosage: 1200 IU, QD
     Route: 058
     Dates: start: 20141005, end: 20141005

REACTIONS (4)
  - Intentional overdose [Unknown]
  - Suicide attempt [Unknown]
  - Hypoglycaemia [Recovered/Resolved]
  - Drug abuse [Unknown]

NARRATIVE: CASE EVENT DATE: 20141005
